FAERS Safety Report 6049443-3 (Version None)
Quarter: 2009Q1

REPORT INFORMATION
  Report Type: 
  Country: None (occurrence: None)
  Receive Date: 20090123
  Receipt Date: 20090113
  Transmission Date: 20090719
  Serious: Yes (Hospitalization)
  Sender: FDA-Public Use
  Company Number: DE-MERCK-0901USA02991

PATIENT
  Age: 84 Year
  Sex: Female

DRUGS (9)
  1. PRINZIDE [Suspect]
     Indication: HYPERTENSION
     Route: 048
     Dates: end: 20080617
  2. AMLODIPINE [Suspect]
     Indication: HYPERTENSION
     Route: 048
  3. METOPROLOL TARTRATE [Suspect]
     Indication: HYPERTENSION
     Route: 048
  4. MOXONIDINE [Suspect]
     Indication: HYPERTENSION
     Route: 048
  5. NITROGLYCERIN [Suspect]
     Indication: HYPERTENSION
     Dates: end: 20080612
  6. ASPIRIN [Concomitant]
     Route: 065
     Dates: start: 20010101
  7. LEVETIRACETAM [Concomitant]
     Route: 065
  8. PANTOZOL [Concomitant]
     Route: 065
  9. SIMVASTATIN [Concomitant]
     Route: 065

REACTIONS (2)
  - DRUG INTERACTION [None]
  - SYNCOPE [None]
